FAERS Safety Report 5798364-X (Version None)
Quarter: 2008Q3

REPORT INFORMATION
  Report Type: 
  Country: None (occurrence: None)
  Receive Date: 20080702
  Receipt Date: 20070719
  Transmission Date: 20090109
  Serious: No
  Sender: FDA-Public Use
  Company Number: A0665258A

PATIENT
  Age: 62 Year
  Sex: Female

DRUGS (5)
  1. PARNATE [Suspect]
     Indication: DEPRESSION
     Dosage: 10MG THREE TIMES PER DAY
     Route: 048
     Dates: start: 19870101
  2. SYNTHROID [Suspect]
  3. LIPITOR [Concomitant]
  4. PRILOSEC [Concomitant]
  5. XANAX [Concomitant]

REACTIONS (5)
  - ANXIETY [None]
  - DIZZINESS [None]
  - HEADACHE [None]
  - HYPERHIDROSIS [None]
  - PALPITATIONS [None]
